FAERS Safety Report 7646716-5 (Version None)
Quarter: 2011Q3

REPORT INFORMATION
  Report Type: 
  Country: None (occurrence: None)
  Receive Date: 20110801
  Receipt Date: 20110721
  Transmission Date: 20111222
  Serious: No
  Sender: FDA-Public Use
  Company Number: NL-NOVOPROD-330145

PATIENT
  Age: 44 Year
  Sex: Female
  Weight: 67 kg

DRUGS (4)
  1. FLUDROCORTISON [Concomitant]
  2. INSULATARD NPH HUMAN [Concomitant]
     Dosage: 18 IU, QD
     Dates: start: 20110505
  3. NOVORAPID FLEXPEN [Suspect]
     Indication: TYPE 1 DIABETES MELLITUS
     Dosage: 30 IU, QD
     Route: 065
     Dates: start: 20110101
  4. MICROGYNON                         /00022701/ [Concomitant]

REACTIONS (12)
  - DROOLING [None]
  - HYPOTENSION [None]
  - MEMORY IMPAIRMENT [None]
  - VISUAL IMPAIRMENT [None]
  - MYALGIA [None]
  - CONSTIPATION [None]
  - DYSPHAGIA [None]
  - ABNORMAL FAECES [None]
  - TREMOR [None]
  - BLOOD GLUCOSE INCREASED [None]
  - SYNCOPE [None]
  - WEIGHT DECREASED [None]
